FAERS Safety Report 8943607 (Version 1)
Quarter: 2012Q4

REPORT INFORMATION
  Report Type: 
  Country: US (occurrence: US)
  Receive Date: 20121204
  Receipt Date: 20121204
  Transmission Date: 20130627
  Serious: Yes (Other)
  Sender: FDA-Public Use
  Company Number: US-SANOFI-AVENTIS-2012SA087946

PATIENT
  Age: 73 Year
  Sex: Female

DRUGS (4)
  1. CLOPIDOGREL  BISULFATE [Suspect]
     Indication: ANTIPLATELET THERAPY
     Route: 065
  2. CLOPIDOGREL  BISULFATE [Suspect]
     Indication: ANTIPLATELET THERAPY
     Route: 065
  3. ASPIRIN [Concomitant]
     Indication: ANTIPLATELET THERAPY
  4. ASPIRIN [Concomitant]
     Indication: ANTIPLATELET THERAPY

REACTIONS (2)
  - Cerebrovascular accident [Unknown]
  - Transient ischaemic attack [Recovered/Resolved]
